FAERS Safety Report 7269606-9 (Version None)
Quarter: 2011Q1

REPORT INFORMATION
  Report Type: 
  Country: None (occurrence: None)
  Receive Date: 20110202
  Receipt Date: 20110125
  Transmission Date: 20110831
  Serious: Yes (Other)
  Sender: FDA-Public Use
  Company Number: US-JNJFOC-20110106967

PATIENT
  Sex: Female
  Weight: 56.7 kg

DRUGS (2)
  1. ORTHO TRI-CYCLEN LO [Suspect]
     Indication: CONTRACEPTION
     Route: 048
  2. ORTHO TRI-CYCLEN LO [Suspect]
     Indication: ACNE
     Route: 048

REACTIONS (3)
  - OFF LABEL USE [None]
  - ASTHMA [None]
  - VAGINAL HAEMORRHAGE [None]
